FAERS Safety Report 15056656 (Version 1)
Quarter: 2018Q2

REPORT INFORMATION
  Report Type: Spontaneous
  Country: US (occurrence: US)
  Receive Date: 20180623
  Receipt Date: 20180623
  Transmission Date: 20180711
  Serious: Yes (Other)
  Sender: FDA-Public Use
  Company Number: US-JNJFOC-20180542734

PATIENT
  Sex: Male
  Weight: 108.86 kg

DRUGS (7)
  1. REVLIMID [Concomitant]
     Active Substance: LENALIDOMIDE
  2. ASPIRIN. [Concomitant]
     Active Substance: ASPIRIN
  3. LYRICA [Concomitant]
     Active Substance: PREGABALIN
  4. CHONDROITIN W/GLUCOSAMINE [Concomitant]
  5. DARZALEX [Suspect]
     Active Substance: DARATUMUMAB
     Indication: PRODUCT USED FOR UNKNOWN INDICATION
     Route: 065
  6. VITAMIN B12 [Concomitant]
     Active Substance: CYANOCOBALAMIN
  7. CALCIUM CARBONATE. [Concomitant]
     Active Substance: CALCIUM CARBONATE

REACTIONS (2)
  - Platelet count decreased [Unknown]
  - Neutrophil count decreased [Unknown]
